FAERS Safety Report 25093312 (Version 2)
Quarter: 2025Q1

REPORT INFORMATION
  Report Type: Report from Study
  Country: NL (occurrence: NL)
  Receive Date: 20250319
  Receipt Date: 20250328
  Transmission Date: 20250409
  Serious: Yes (Other)
  Sender: TEVA
  Company Number: NL-TEVA-VS-3309687

PATIENT

DRUGS (1)
  1. CLOZAPINE [Suspect]
     Active Substance: CLOZAPINE
     Indication: Schizophrenia
     Route: 065

REACTIONS (1)
  - Neuroleptic malignant syndrome [Unknown]
